FAERS Safety Report 21308419 (Version 2)
Quarter: 2022Q3

REPORT INFORMATION
  Report Type: Spontaneous
  Country: US (occurrence: US)
  Receive Date: 20220908
  Receipt Date: 20220921
  Transmission Date: 20221027
  Serious: Yes (Other)
  Sender: FDA-Public Use
  Company Number: US-TEVA-2022-US-2070270

PATIENT
  Age: 71 Year
  Sex: Male

DRUGS (12)
  1. CARBOPLATIN [Suspect]
     Active Substance: CARBOPLATIN
     Indication: Lung squamous cell carcinoma metastatic
     Dosage: 4 CYCLES OF CARBOPLATIN, PACLITAXEL AND PEMBROLIZUMAB
     Route: 065
  2. CARBOPLATIN [Suspect]
     Active Substance: CARBOPLATIN
     Dosage: 2 CYCLES OF CARBOPLATIN, PACLITAXEL, NIVOLUMAB AND IPILIMUMAB COMBINED THERAPY
     Route: 065
  3. PACLITAXEL [Suspect]
     Active Substance: PACLITAXEL
     Indication: Lung squamous cell carcinoma metastatic
     Dosage: 4 CYCLES OF CARBOPLATIN, PACLITAXEL AND PEMBROLIZUMAB
     Route: 065
  4. PACLITAXEL [Suspect]
     Active Substance: PACLITAXEL
     Dosage: 2 CYCLES OF CARBOPLATIN, PACLITAXEL, NIVOLUMAB AND IPILIMUMAB COMBINED THERAPY
     Route: 065
  5. PEMBROLIZUMAB [Suspect]
     Active Substance: PEMBROLIZUMAB
     Indication: Lung squamous cell carcinoma metastatic
     Dosage: 4 CYCLES OF CARBOPLATIN, PACLITAXEL AND PEMBROLIZUMAB
     Route: 065
  6. PEMBROLIZUMAB [Suspect]
     Active Substance: PEMBROLIZUMAB
     Dosage: ONE DOSE OF MAINTENANCE PEMBROLIZUMAB
     Route: 065
  7. NIVOLUMAB [Suspect]
     Active Substance: NIVOLUMAB
     Indication: Lung squamous cell carcinoma metastatic
     Dosage: 2 CYCLES OF CARBOPLATIN, PACLITAXEL, NIVOLUMAB AND IPILIMUMAB COMBINED THERAPY
     Route: 065
  8. NIVOLUMAB [Suspect]
     Active Substance: NIVOLUMAB
     Dosage: MAINTENANCE IPILIMUMAB AND NIVOLUMAB
     Route: 065
  9. IPILIMUMAB [Suspect]
     Active Substance: IPILIMUMAB
     Indication: Lung squamous cell carcinoma metastatic
     Dosage: 2 CYCLES OF CARBOPLATIN, PACLITAXEL, NIVOLUMAB AND IPILIMUMAB COMBINED THERAPY
     Route: 065
  10. IPILIMUMAB [Suspect]
     Active Substance: IPILIMUMAB
     Dosage: MAINTENANCE IPILIMUMAB AND NIVOLUMAB
     Route: 065
  11. BEVACIZUMAB [Suspect]
     Active Substance: BEVACIZUMAB
     Indication: Brain oedema
     Dosage: 6 CYCLES OF BEVACIZUMAB
     Route: 065
  12. BEVACIZUMAB [Suspect]
     Active Substance: BEVACIZUMAB
     Indication: Metastases to central nervous system

REACTIONS (3)
  - Thyroiditis [Unknown]
  - Adrenal insufficiency [Unknown]
  - Hepatitis B reactivation [Recovered/Resolved]
